FAERS Safety Report 13382139 (Version 1)
Quarter: 2017Q1

REPORT INFORMATION
  Report Type: Report from Study
  Country: BR (occurrence: BR)
  Receive Date: 20170329
  Receipt Date: 20170329
  Transmission Date: 20170429
  Serious: Yes (Other)
  Sender: FDA-Public Use
  Company Number: PHHY2017BR044750

PATIENT
  Sex: Female

DRUGS (1)
  1. FORASEQ [Suspect]
     Active Substance: BUDESONIDE\FORMOTEROL FUMARATE
     Indication: LUNG DISORDER
     Dosage: 1 DF, (BUDESONIDE 400 UG, FORMOTEROL FUMARATE 12 UG), UNK
     Route: 065

REACTIONS (4)
  - Dyspnoea [Unknown]
  - Pulmonary function test decreased [Unknown]
  - Product use issue [Unknown]
  - Drug ineffective [Unknown]
